FAERS Safety Report 4392983-3 (Version None)
Quarter: 2004Q3

REPORT INFORMATION
  Report Type: 
  Country: None (occurrence: None)
  Receive Date: 20040702
  Receipt Date: 20040420
  Transmission Date: 20050211
  Serious: Yes (Other)
  Sender: FDA-Public Use
  Company Number: 2004UW07943

PATIENT
  Age: 74 Year
  Sex: Female
  Weight: 58.514 kg

DRUGS (7)
  1. CRESTOR [Suspect]
     Indication: HYPERCHOLESTEROLAEMIA
     Dosage: 10 MG QD; PO
     Route: 048
     Dates: start: 20040401
  2. TOPROL-XL [Suspect]
     Indication: HYPERTENSION
     Dosage: 100 MG DAILY; PO
     Route: 048
  3. AVAPRO [Concomitant]
  4. NORVASC [Concomitant]
  5. HYDROCHLOROTHIAZIDE [Concomitant]
  6. CATAPRES [Concomitant]
  7. AMARYL [Concomitant]

REACTIONS (1)
  - URINARY TRACT INFECTION [None]
